FAERS Safety Report 8553084-3 (Version None)
Quarter: 2012Q3

REPORT INFORMATION
  Report Type: 
  Country: None (occurrence: None)
  Receive Date: 20120731
  Receipt Date: 20120717
  Transmission Date: 20120928
  Serious: No
  Sender: FDA-Public Use
  Company Number: US-SANOFI-AVENTIS-2012SA050670

PATIENT
  Age: 68 Year
  Sex: Male

DRUGS (4)
  1. PLAVIX [Suspect]
     Indication: STENT PLACEMENT
     Route: 048
     Dates: start: 20090101, end: 20120501
  2. ATORVASTATIN [Concomitant]
  3. PLAVIX [Suspect]
     Route: 048
     Dates: start: 20120501, end: 20120501
  4. ENALAPRIL MALEATE [Concomitant]

REACTIONS (1)
  - CONTUSION [None]
